FAERS Safety Report 25968930 (Version 2)
Quarter: 2025Q4

REPORT INFORMATION
  Report Type: Report from Study
  Country: US (occurrence: US)
  Receive Date: 20251028
  Receipt Date: 20251031
  Transmission Date: 20260118
  Serious: Yes (Other)
  Sender: MERCK SHARP & DOHME LLC
  Company Number: US-009507513-2341641

PATIENT
  Age: 48 Year
  Sex: Female
  Weight: 70.307 kg

DRUGS (7)
  1. WINREVAIR [Suspect]
     Active Substance: SOTATERCEPT-CSRK
     Dosage: 0.4 ML UNDER THE SKIN FOR 1 DOSE, THEN INCREASE TO 1.0 ML FOR TARGET DOSE. EACH DOSE SHOULD BE GI...
     Route: 050
     Dates: start: 202510
  2. WINREVAIR [Suspect]
     Active Substance: SOTATERCEPT-CSRK
  3. WINREVAIR [Suspect]
     Active Substance: SOTATERCEPT-CSRK
  4. WINREVAIR [Suspect]
     Active Substance: SOTATERCEPT-CSRK
  5. REMODULIN [Suspect]
     Active Substance: TREPROSTINIL
     Route: 042
  6. AMBRISENTAN [Concomitant]
     Active Substance: AMBRISENTAN
  7. ADEMPAS [Concomitant]
     Active Substance: RIOCIGUAT

REACTIONS (5)
  - Central venous catheterisation [Unknown]
  - Blood pressure abnormal [Unknown]
  - Oedema peripheral [Unknown]
  - Flushing [Unknown]
  - Dry skin [Unknown]

NARRATIVE: CASE EVENT DATE: 20251001
